FAERS Safety Report 6077228-0 (Version None)
Quarter: 2009Q1

REPORT INFORMATION
  Report Type: 
  Country: None (occurrence: None)
  Receive Date: 20090213
  Receipt Date: 20090206
  Transmission Date: 20090719
  Serious: Yes (Death)
  Sender: FDA-Public Use
  Company Number: A0702041A

PATIENT
  Age: 48 Year
  Sex: Male
  Weight: 102.7 kg

DRUGS (9)
  1. AVANDIA [Suspect]
     Dosage: 4MG PER DAY
     Route: 048
     Dates: start: 20000701, end: 20051202
  2. GLUCOTROL XL [Concomitant]
  3. LANTUS [Concomitant]
  4. ZAROXOLYN [Concomitant]
  5. LISINOPRIL [Concomitant]
  6. ZOLOFT [Concomitant]
  7. COREG [Concomitant]
  8. CRESTOR [Concomitant]
  9. TORSEMIDE [Concomitant]

REACTIONS (6)
  - BLINDNESS [None]
  - CARDIOMYOPATHY [None]
  - CORONARY ARTERY DISEASE [None]
  - DIABETIC RETINOPATHY [None]
  - HEART INJURY [None]
  - MYOCARDIAL INFARCTION [None]
